FAERS Safety Report 5767098-X (Version None)
Quarter: 2008Q2

REPORT INFORMATION
  Report Type: 
  Country: None (occurrence: None)
  Receive Date: 20080609
  Receipt Date: 20080529
  Transmission Date: 20081010
  Serious: Yes (Hospitalization)
  Sender: FDA-Public Use
  Company Number: 2008BI003339

PATIENT
  Age: 57 Year
  Sex: Female

DRUGS (1)
  1. AVONEX [Suspect]
     Indication: MULTIPLE SCLEROSIS
     Dosage: 30 UG; QW; IM
     Route: 030
     Dates: start: 20051111

REACTIONS (5)
  - CLAVICLE FRACTURE [None]
  - DEHYDRATION [None]
  - INFLUENZA [None]
  - LOSS OF CONSCIOUSNESS [None]
  - OBESITY [None]
